FAERS Safety Report 9196450 (Version 1)
Quarter: 2013Q1

REPORT INFORMATION
  Report Type: Spontaneous
  Country: US (occurrence: US)
  Receive Date: 20130328
  Receipt Date: 20130328
  Transmission Date: 20140127
  Serious: No
  Sender: FDA-Public Use
  Company Number: US-PFIZER INC-2013096224

PATIENT
  Age: 46 Year
  Sex: Female
  Weight: 77.1 kg

DRUGS (6)
  1. LOSARTAN [Suspect]
     Indication: BLOOD PRESSURE ABNORMAL
     Dosage: 50 MG, 2X/DAY
  2. LOSARTAN [Suspect]
     Indication: HEART RATE IRREGULAR
  3. CHLORTHALIDONE [Suspect]
     Indication: BLOOD PRESSURE ABNORMAL
     Dosage: 25 MG, 2X/DAY
  4. CHLORTHALIDONE [Suspect]
     Indication: HEART RATE IRREGULAR
  5. PRAVASTATIN SODIUM [Concomitant]
     Indication: BLOOD CHOLESTEROL INCREASED
     Dosage: 20 MG, 1X/DAY
  6. NEXIUM [Concomitant]
     Dosage: UNK

REACTIONS (1)
  - Drug ineffective for unapproved indication [Recovered/Resolved]
